FAERS Safety Report 15066782 (Version 1)
Quarter: 2018Q2

REPORT INFORMATION
  Report Type: Spontaneous
  Country: US (occurrence: US)
  Receive Date: 20180626
  Receipt Date: 20180626
  Transmission Date: 20180711
  Serious: No
  Sender: FDA-Public Use
  Company Number: US-MYLANLABS-2018M1039827

PATIENT
  Sex: Male
  Weight: 68 kg

DRUGS (6)
  1. DESIPRAMINE [Concomitant]
     Active Substance: DESIPRAMINE
     Indication: NEURALGIA
  2. FENTANYL TRANSDERMAL SYSTEM [Suspect]
     Active Substance: FENTANYL
     Indication: SPINAL CORD INJURY
  3. GABAPENTIN. [Concomitant]
     Active Substance: GABAPENTIN
     Indication: SPINAL CORD INJURY
  4. FENTANYL TRANSDERMAL SYSTEM [Suspect]
     Active Substance: FENTANYL
     Indication: NEURALGIA
  5. DESIPRAMINE [Concomitant]
     Active Substance: DESIPRAMINE
     Indication: SPINAL CORD INJURY
  6. GABAPENTIN. [Concomitant]
     Active Substance: GABAPENTIN
     Indication: NEURALGIA

REACTIONS (4)
  - Wrong technique in product usage process [Recovered/Resolved]
  - Drug effect decreased [Recovered/Resolved]
  - No adverse event [Unknown]
  - Product adhesion issue [Recovering/Resolving]
